FAERS Safety Report 13032155 (Version 1)
Quarter: 2016Q4

REPORT INFORMATION
  Report Type: Spontaneous
  Country: US (occurrence: US)
  Receive Date: 20161215
  Receipt Date: 20161215
  Transmission Date: 20170207
  Serious: Yes (Hospitalization)
  Sender: FDA-Public Use
  Company Number: US-SA-2016SA226966

PATIENT
  Age: 68 Year
  Sex: Male

DRUGS (3)
  1. ALIROCUMAB PREFILLED PEN [Concomitant]
     Active Substance: ALIROCUMAB
     Indication: BLOOD CHOLESTEROL
     Dates: start: 20160907
  2. PRALUENT [Suspect]
     Active Substance: ALIROCUMAB
     Indication: BLOOD CHOLESTEROL
     Route: 058
     Dates: start: 20161130
  3. PRALUENT [Suspect]
     Active Substance: ALIROCUMAB
     Indication: BLOOD CHOLESTEROL
     Route: 058
     Dates: start: 20160907

REACTIONS (1)
  - Renal cancer stage I [Unknown]

NARRATIVE: CASE EVENT DATE: 20161110
